FAERS Safety Report 6193448-9 (Version None)
Quarter: 2009Q2

REPORT INFORMATION
  Report Type: 
  Country: None (occurrence: None)
  Receive Date: 20090518
  Receipt Date: 20090509
  Transmission Date: 20091009
  Serious: Yes (Hospitalization, Other)
  Sender: FDA-Public Use
  Company Number: US-AMGEN-QUU346368

PATIENT
  Sex: Female

DRUGS (11)
  1. NEULASTA [Suspect]
     Indication: CHEMOTHERAPY
     Route: 065
     Dates: start: 20090221
  2. ADRIAMYCIN RDF [Concomitant]
     Dates: start: 20090220
  3. CYTOXAN [Concomitant]
     Dates: start: 20090220
  4. TAXOTERE [Concomitant]
     Dates: start: 20090220
  5. EMEND [Concomitant]
  6. EMEND [Concomitant]
  7. ZOFRAN [Concomitant]
  8. ATIVAN [Concomitant]
  9. ADDERALL 10 [Concomitant]
  10. DEXAMETHASONE 4MG TAB [Concomitant]
  11. LUNESTA [Concomitant]

REACTIONS (7)
  - ASTHMA [None]
  - BONE PAIN [None]
  - CHEST DISCOMFORT [None]
  - DYSPNOEA [None]
  - LATEX ALLERGY [None]
  - MUSCULOSKELETAL PAIN [None]
  - PYREXIA [None]
